FAERS Safety Report 9963407 (Version 1)
Quarter: 2014Q1

REPORT INFORMATION
  Report Type: Spontaneous
  Country: MA (occurrence: MA)
  Receive Date: 20140305
  Receipt Date: 20140305
  Transmission Date: 20141002
  Serious: Yes (Hospitalization)
  Sender: FDA-Public Use
  Company Number: MA-BRISTOL-MYERS SQUIBB COMPANY-20351953

PATIENT
  Age: 40 Year
  Sex: Female

DRUGS (4)
  1. LYSODREN TABS 500 MG [Suspect]
     Indication: ADRENOCORTICAL CARCINOMA
  2. CORTICOSTEROID [Concomitant]
  3. PARACETAMOL [Concomitant]
  4. ACETYLSALICYLIC ACID [Concomitant]

REACTIONS (4)
  - Pyrexia [Unknown]
  - Oral pain [Unknown]
  - Fatigue [Unknown]
  - Nausea [Unknown]
